FAERS Safety Report 19647360 (Version 2)
Quarter: 2021Q3

REPORT INFORMATION
  Report Type: Spontaneous
  Country: JP (occurrence: JP)
  Receive Date: 20210802
  Receipt Date: 20210914
  Transmission Date: 20211014
  Serious: Yes (Other)
  Sender: FDA-Public Use
  Company Number: JP-DSJP-DSJ-2021-123635

PATIENT
  Age: 78 Year
  Sex: Male

DRUGS (4)
  1. FEBUXOSTAT. [Concomitant]
     Active Substance: FEBUXOSTAT
     Dosage: UNK
     Route: 065
  2. CELECOXIB. [Suspect]
     Active Substance: CELECOXIB
     Dosage: UNK
     Route: 065
  3. REBAMIPIDE [Concomitant]
     Active Substance: REBAMIPIDE
     Dosage: UNK
     Route: 065
  4. OLMETEC OD [Suspect]
     Active Substance: OLMESARTAN MEDOXOMIL
     Indication: HYPERTENSION
     Dosage: UNK
     Route: 065

REACTIONS (2)
  - Renal impairment [Unknown]
  - Hyperkalaemia [Recovering/Resolving]
